FAERS Safety Report 5574159-7 (Version None)
Quarter: 2007Q4

REPORT INFORMATION
  Report Type: 
  Country: None (occurrence: None)
  Receive Date: 20071221
  Receipt Date: 20071210
  Transmission Date: 20080405
  Serious: Yes (Hospitalization)
  Sender: FDA-Public Use
  Company Number: 2007S1011139

PATIENT
  Age: 64 Year
  Sex: Female

DRUGS (5)
  1. AMLODIPINE BESYLATE [Suspect]
     Indication: HYPERTENSION
     Dosage: 5 MG; X1; ORAL
     Route: 048
     Dates: start: 20071109, end: 20071109
  2. ASPIRIN [Concomitant]
  3. COZAAR [Concomitant]
  4. VERAPAMIL HYDROCHLORIDE [Concomitant]
  5. CLONIDINE HYDROCHLORIDE [Concomitant]

REACTIONS (4)
  - BLOOD PRESSURE INCREASED [None]
  - DRY EYE [None]
  - HYPERSENSITIVITY [None]
  - PALPITATIONS [None]
